FAERS Safety Report 5405073-5 (Version None)
Quarter: 2007Q3

REPORT INFORMATION
  Report Type: 
  Country: None (occurrence: None)
  Receive Date: 20070803
  Receipt Date: 20070726
  Transmission Date: 20080115
  Serious: Yes (Hospitalization)
  Sender: FDA-Public Use
  Company Number: JP-ROCHE-407253

PATIENT
  Age: 32 Year
  Sex: Female
  Weight: 50 kg

DRUGS (27)
  1. MYCOPHENOLATE MOFETIL [Suspect]
     Route: 048
     Dates: end: 20030324
  2. MYCOPHENOLATE MOFETIL [Suspect]
     Route: 048
     Dates: start: 20030329, end: 20030510
  3. MYCOPHENOLATE MOFETIL [Suspect]
     Route: 048
     Dates: start: 20030511, end: 20030513
  4. MYCOPHENOLATE MOFETIL [Suspect]
     Route: 048
     Dates: start: 20030514, end: 20030703
  5. MYCOPHENOLATE MOFETIL [Suspect]
     Route: 048
     Dates: start: 20030704, end: 20030820
  6. MYCOPHENOLATE MOFETIL [Suspect]
     Route: 048
     Dates: start: 20030903, end: 20030903
  7. MYCOPHENOLATE MOFETIL [Suspect]
     Route: 048
     Dates: start: 20030904, end: 20031009
  8. MYCOPHENOLATE MOFETIL [Suspect]
     Route: 048
     Dates: start: 20031010, end: 20031023
  9. MYCOPHENOLATE MOFETIL [Suspect]
     Route: 048
     Dates: start: 20031024, end: 20031111
  10. MYCOPHENOLATE MOFETIL [Suspect]
     Route: 048
     Dates: start: 20031118, end: 20031205
  11. MYCOPHENOLATE MOFETIL [Suspect]
     Route: 048
     Dates: start: 20051202, end: 20061011
  12. MYCOPHENOLATE MOFETIL [Suspect]
     Route: 048
     Dates: start: 20061012, end: 20061020
  13. MYCOPHENOLATE MOFETIL [Suspect]
     Route: 048
     Dates: start: 20061021, end: 20061025
  14. MYCOPHENOLATE MOFETIL [Suspect]
     Route: 048
     Dates: start: 20061026
  15. NEORAL [Suspect]
     Route: 048
  16. NEORAL [Suspect]
     Route: 048
     Dates: start: 20021101
  17. PREDNISOLONE TAB [Suspect]
     Route: 048
  18. PREDNISOLONE TAB [Suspect]
     Dosage: RANGE REPORTED: 0-10MG
     Route: 048
     Dates: start: 20021101
  19. PREDNISOLONE TAB [Suspect]
     Route: 048
     Dates: start: 20051202
  20. ANPLAG [Concomitant]
     Route: 048
     Dates: start: 20021101, end: 20030820
  21. EPADEL [Concomitant]
     Route: 048
     Dates: start: 20021101, end: 20030703
  22. PRAVASTATIN [Concomitant]
     Dosage: 1 NOV 2002 - 3 APR 2003: DOSE REPORTED AS 10 MG PER DAY 24 OCT 2003 - 5 DEC 2003: DOSE REPORTED AS +
     Route: 048
     Dates: start: 20021101, end: 20061201
  23. DIOVAN [Concomitant]
     Dosage: 7 DEC 2002 - 12 JUN 2003: DOSE REPORTED AS 160 MG PER DAY 2 DEC 2005 - 1 DEC 2006: DOSE REPORTED AS+
     Route: 048
     Dates: start: 20021207, end: 20061201
  24. ALLOPURINOL [Concomitant]
     Route: 048
     Dates: start: 20030704, end: 20030820
  25. ZANTAC 150 [Concomitant]
     Dosage: DOSED FROM 4 JUL 2003 - 20 AUG 2003 AND 2 DEC 2005 - 11 MAY 2006
     Route: 048
     Dates: start: 20030704, end: 20060511
  26. FAMOTIDINE [Concomitant]
     Route: 048
     Dates: start: 20031024, end: 20031205
  27. OMEPRAZOLE [Concomitant]
     Route: 048
     Dates: start: 20060502, end: 20061201

REACTIONS (5)
  - DIARRHOEA [None]
  - GASTRIC ULCER [None]
  - HAEMORRHOIDS [None]
  - PYREXIA [None]
  - VOMITING [None]
